FAERS Safety Report 7841050-2 (Version None)
Quarter: 2011Q4

REPORT INFORMATION
  Report Type: 
  Country: None (occurrence: None)
  Receive Date: 20111020
  Receipt Date: 20111004
  Transmission Date: 20120403
  Serious: Yes (Hospitalization, Disabling)
  Sender: FDA-Public Use
  Company Number: 2010MA005194

PATIENT
  Sex: Female

DRUGS (30)
  1. STEROIDS [Concomitant]
  2. ATENOLOL [Concomitant]
  3. ELOCON [Concomitant]
  4. CELEXA [Concomitant]
  5. AVANDARYL [Concomitant]
  6. ZEGERID [Concomitant]
  7. HYDROCORTISONE [Concomitant]
  8. ALBUTEROL [Concomitant]
  9. LOMOTIL [Concomitant]
  10. TETRACYCLINE [Concomitant]
  11. BENADRYL [Concomitant]
  12. LANTUS [Concomitant]
  13. LISINOPRIL [Concomitant]
  14. TEMAZEPAM [Concomitant]
  15. TEMAZEPAM [Concomitant]
  16. CITALOPRAM HYDROBROMIDE [Concomitant]
  17. JANUVIA [Concomitant]
  18. METOCLOPRAMIDE [Suspect]
     Indication: ABDOMINAL PAIN
     Dosage: 10 MG;PO
     Route: 048
     Dates: start: 20061001, end: 20070801
  19. METOCLOPRAMIDE [Suspect]
     Indication: DYSPEPSIA
     Dosage: 10 MG;PO
     Route: 048
     Dates: start: 20061001, end: 20070801
  20. ACTOS [Concomitant]
  21. AVANDIA [Concomitant]
  22. LOVASTATIN [Concomitant]
  23. INSULIN [Concomitant]
  24. ZOLOFT [Concomitant]
  25. PRILOSEC [Concomitant]
  26. LASIX [Concomitant]
  27. TRAMADOL HCL [Concomitant]
  28. NYSTATIN [Concomitant]
  29. COGENTIN [Concomitant]
  30. ZETIA [Concomitant]

REACTIONS (66)
  - TARDIVE DYSKINESIA [None]
  - PAIN [None]
  - ASTHENIA [None]
  - OXYGEN SATURATION DECREASED [None]
  - STAPHYLOCOCCUS TEST POSITIVE [None]
  - EXTRAPYRAMIDAL DISORDER [None]
  - ENTEROCOCCUS TEST POSITIVE [None]
  - PROTEIN TOTAL DECREASED [None]
  - ATAXIA [None]
  - URINE COPPER DECREASED [None]
  - TREATMENT NONCOMPLIANCE [None]
  - NAUSEA [None]
  - DIZZINESS [None]
  - NECK PAIN [None]
  - RED BLOOD CELL SEDIMENTATION RATE INCREASED [None]
  - MONOCYTE PERCENTAGE INCREASED [None]
  - BLOOD MAGNESIUM DECREASED [None]
  - LETHARGY [None]
  - CIRCADIAN RHYTHM SLEEP DISORDER [None]
  - SOMNOLENCE [None]
  - FATIGUE [None]
  - RASH [None]
  - HEADACHE [None]
  - OEDEMA PERIPHERAL [None]
  - ABDOMINAL PAIN UPPER [None]
  - AORTIC ARTERIOSCLEROSIS [None]
  - SLEEP APNOEA SYNDROME [None]
  - DEFORMITY [None]
  - ACTIVITIES OF DAILY LIVING IMPAIRED [None]
  - HYPOGLYCAEMIA [None]
  - ARTHRALGIA [None]
  - PAIN IN EXTREMITY [None]
  - BRONCHITIS [None]
  - PYREXIA [None]
  - DIARRHOEA [None]
  - BLOOD COPPER DECREASED [None]
  - BLOOD GLUCOSE INCREASED [None]
  - URINE ANALYSIS ABNORMAL [None]
  - BLOOD ALBUMIN DECREASED [None]
  - NERVOUS SYSTEM DISORDER [None]
  - MENTAL DISORDER [None]
  - MENTAL IMPAIRMENT [None]
  - DENTAL CARIES [None]
  - DECREASED APPETITE [None]
  - MUSCULOSKELETAL STIFFNESS [None]
  - LUNG HYPERINFLATION [None]
  - RETCHING [None]
  - NARCOLEPSY [None]
  - SUBMAXILLARY GLAND ENLARGEMENT [None]
  - WHITE BLOOD CELL COUNT DECREASED [None]
  - HAEMATOCRIT DECREASED [None]
  - PLATELET COUNT DECREASED [None]
  - BLOOD CALCIUM DECREASED [None]
  - CEREBELLAR ATROPHY [None]
  - CEREBRAL ATROPHY [None]
  - SINUS DISORDER [None]
  - INCORRECT DRUG ADMINISTRATION DURATION [None]
  - MULTIPLE INJURIES [None]
  - FAMILY STRESS [None]
  - HYPERSOMNIA [None]
  - URINARY TRACT INFECTION [None]
  - GINGIVAL PAIN [None]
  - GASTROENTERITIS [None]
  - BLOOD PRESSURE DIASTOLIC DECREASED [None]
  - MEAN CELL VOLUME INCREASED [None]
  - NEUTROPHIL COUNT DECREASED [None]
